FAERS Safety Report 7639668 (Version 4)
Quarter: 2013Q3

REPORT INFORMATION
  Report Type: Report from Study
  Country: US (occurrence: US)
  Receive Date: 20101025
  Receipt Date: 20130807
  Transmission Date: 20140515
  Serious: Yes (Hospitalization)
  Sender: FDA-Public Use
  Company Number: US-BRISTOL-MYERS SQUIBB COMPANY-15347156

PATIENT
  Age: 62 Year
  Sex: Male
  Weight: 119 kg

DRUGS (2)
  1. CISPLATIN [Suspect]
     Indication: OESOPHAGEAL ADENOCARCINOMA
     Dosage: LAST DOSE ON 05OCT2010;DOSAGE:25MG/M2 ON DAYS 1,8,15,22,29,36.
     Route: 042
     Dates: start: 20100907
  2. TAXOL [Suspect]
     Indication: OESOPHAGEAL ADENOCARCINOMA
     Dosage: LAST DOSE: 05OCT2010;DOSAGE:50MG/M2 ON DAYS 1,8,15,22,29,36.
     Route: 042
     Dates: start: 20100907

REACTIONS (5)
  - Atrial flutter [Not Recovered/Not Resolved]
  - Ventricular arrhythmia [Recovering/Resolving]
  - Dehydration [Recovering/Resolving]
  - Nausea [Recovering/Resolving]
  - Diarrhoea [Recovering/Resolving]
